FAERS Safety Report 13915425 (Version 2)
Quarter: 2017Q3

REPORT INFORMATION
  Report Type: Spontaneous
  Country: US (occurrence: US)
  Receive Date: 20170829
  Receipt Date: 20170923
  Transmission Date: 20171127
  Serious: Yes (Hospitalization)
  Sender: FDA-Public Use
  Company Number: US-009507513-1708USA011897

PATIENT
  Age: 66 Year
  Sex: Male

DRUGS (2)
  1. LITHIUM. [Suspect]
     Active Substance: LITHIUM
     Indication: BIPOLAR DISORDER
     Dosage: UNK
  2. PRINIVIL [Suspect]
     Active Substance: LISINOPRIL
     Indication: HYPERTENSION
     Dosage: UNK
     Route: 048

REACTIONS (13)
  - Ataxia [Unknown]
  - Confusional state [Unknown]
  - Muscle contractions involuntary [Unknown]
  - Lethargy [Unknown]
  - Somnolence [Unknown]
  - Hyperreflexia [Unknown]
  - Tremor [Unknown]
  - Memory impairment [Unknown]
  - Toxicity to various agents [Unknown]
  - Incontinence [Unknown]
  - Agitation [Unknown]
  - Myoclonus [Unknown]
  - Dysarthria [Unknown]
